FAERS Safety Report 4868334-4 (Version None)
Quarter: 2005Q4

REPORT INFORMATION
  Report Type: 
  Country: None (occurrence: None)
  Receive Date: 20051229
  Receipt Date: 20051220
  Transmission Date: 20060501
  Serious: Yes (Hospitalization)
  Sender: FDA-Public Use
  Company Number: JP-MERCK-0512USA03475

PATIENT
  Age: 80 Year
  Sex: Male

DRUGS (9)
  1. SINGULAIR [Suspect]
     Indication: ASTHMA
     Route: 048
     Dates: start: 20050323, end: 20050328
  2. HARNAL [Concomitant]
     Indication: BENIGN PROSTATIC HYPERPLASIA
     Route: 048
  3. UNIPHYL [Concomitant]
     Indication: ASTHMA
     Route: 048
  4. IPD [Concomitant]
     Indication: ASTHMA
     Route: 048
  5. SEREVENT [Concomitant]
     Indication: ASTHMA
     Route: 055
  6. PULMICORT [Concomitant]
     Indication: ASTHMA
     Route: 055
  7. SPIRIVA [Concomitant]
     Indication: ASTHMA
     Route: 055
  8. MEPTIN [Concomitant]
     Indication: ASTHMA
     Route: 065
  9. BENZALIN [Concomitant]
     Indication: INSOMNIA
     Route: 048

REACTIONS (2)
  - ALLERGIC GRANULOMATOUS ANGIITIS [None]
  - LUNG INFILTRATION [None]
